FAERS Safety Report 8892943 (Version 1)
Quarter: 2012Q4

REPORT INFORMATION
  Report Type: Spontaneous
  Country: BR (occurrence: None)
  Receive Date: 20121101
  Receipt Date: 20121101
  Transmission Date: 20130627
  Serious: Yes (Other)
  Sender: FDA-Public Use
  Company Number: 2012R5-55386

PATIENT
  Age: 55 Year
  Sex: Female
  Weight: 51 kg

DRUGS (3)
  1. CEPHALEXIN [Suspect]
     Indication: WOUND INFECTION
     Route: 048
     Dates: start: 20120322, end: 20120323
  2. APRESOLINA (HYDRALAZINE HYDROCHLORIDE) [Concomitant]
  3. HYDROMET ((METHYLDOPA 250MG + HYDROCHLOROTHIAZIDE 25MG) [Concomitant]

REACTIONS (7)
  - Skin exfoliation [None]
  - Generalised erythema [None]
  - Pruritus generalised [None]
  - Swelling face [None]
  - Oedema peripheral [None]
  - Oedema peripheral [None]
  - Skin ulcer [None]
